FAERS Safety Report 21751637 (Version 1)
Quarter: 2022Q4

REPORT INFORMATION
  Report Type: Spontaneous
  Country: US (occurrence: US)
  Receive Date: 20221220
  Receipt Date: 20221220
  Transmission Date: 20230112
  Serious: No
  Sender: FDA-Public Use
  Company Number: US-CELLTRION INC.-2021US016513

PATIENT

DRUGS (2)
  1. TRUXIMA [Suspect]
     Active Substance: RITUXIMAB-ABBS
     Indication: Rheumatoid arthritis
     Dosage: 10 MILLIGRAM PER MILLILITRE
     Route: 042
     Dates: start: 20210115
  2. TRUXIMA [Suspect]
     Active Substance: RITUXIMAB-ABBS
     Dosage: 10 MILLIGRAM PER MILLILITRE
     Route: 042
     Dates: start: 20210129

REACTIONS (2)
  - Therapy change [Unknown]
  - Drug ineffective [Unknown]
